FAERS Safety Report 5517499-X (Version None)
Quarter: 2007Q4

REPORT INFORMATION
  Report Type: 
  Country: None (occurrence: None)
  Receive Date: 20071114
  Receipt Date: 20071108
  Transmission Date: 20080405
  Serious: Yes (Hospitalization)
  Sender: FDA-Public Use
  Company Number: FR-JNJFOC-20071102552

PATIENT
  Age: 46 Year
  Sex: Female

DRUGS (4)
  1. HALDOL [Suspect]
     Indication: SCHIZOPHRENIA
  2. NOZINAN [Suspect]
     Indication: DRUG USE FOR UNKNOWN INDICATION
  3. TERALITHE [Suspect]
     Indication: DRUG USE FOR UNKNOWN INDICATION
  4. AKINETON [Suspect]
     Indication: DRUG USE FOR UNKNOWN INDICATION

REACTIONS (1)
  - NECROTISING COLITIS [None]
